FAERS Safety Report 25363124 (Version 1)
Quarter: 2025Q2

REPORT INFORMATION
  Report Type: Spontaneous
  Country: BR (occurrence: BR)
  Receive Date: 20250527
  Receipt Date: 20250527
  Transmission Date: 20250716
  Serious: Yes (Hospitalization)
  Sender: SUNOVION
  Company Number: BR-SMPA-2025SPA006469

PATIENT

DRUGS (1)
  1. LATUDA [Suspect]
     Active Substance: LURASIDONE HYDROCHLORIDE
     Indication: Psychotic disorder
     Dosage: 3 DF, QD (3 DOSAGE FORM, QD, 3 TABLETS AT ONCE)
     Route: 048
     Dates: start: 20250504

REACTIONS (5)
  - Psychotic disorder [Unknown]
  - Aggression [Unknown]
  - Insomnia [Unknown]
  - Extra dose administered [Unknown]
  - Product use in unapproved indication [Unknown]
